FAERS Safety Report 5128185-2 (Version None)
Quarter: 2006Q4

REPORT INFORMATION
  Report Type: 
  Country: None (occurrence: None)
  Receive Date: 20061011
  Receipt Date: 20060925
  Transmission Date: 20070319
  Serious: Yes (Other)
  Sender: FDA-Public Use
  Company Number: 061003-0000842

PATIENT
  Sex: Female

DRUGS (1)
  1. DACTINOMYCIN [Suspect]
     Indication: GESTATIONAL TROPHOBLASTIC TUMOUR
     Dosage: 1.25 MG/M**2;Q2W;IV
     Route: 042

REACTIONS (2)
  - DRUG TOXICITY [None]
  - PAIN [None]
